FAERS Safety Report 4585840-0 (Version None)
Quarter: 2005Q1

REPORT INFORMATION
  Report Type: 
  Country: None (occurrence: None)
  Receive Date: 20050125
  Receipt Date: 20041007
  Transmission Date: 20050727
  Serious: No
  Sender: FDA-Public Use
  Company Number: USA040978708

PATIENT
  Age: 78 Year
  Sex: Female
  Weight: 95 kg

DRUGS (6)
  1. FORTEO [Suspect]
     Indication: OSTEOPOROSIS
     Dosage: 20 UG/1 DAY
     Dates: start: 20040828
  2. GLUCOSAMINE [Concomitant]
  3. FOLIC ACID [Concomitant]
  4. CALCIUM AND VITAMIN D [Concomitant]
  5. UNSPECIFIED MEDICATION FOR HIGH BLOOD PRESSURE [Concomitant]
  6. UNSPECIFIED MEDICATION FOR DIABETES [Concomitant]

REACTIONS (4)
  - BLOOD GLUCOSE INCREASED [None]
  - FATIGUE [None]
  - HYPERTENSION [None]
  - SOMNOLENCE [None]
